FAERS Safety Report 5398381-8 (Version None)
Quarter: 2007Q3

REPORT INFORMATION
  Report Type: 
  Country: None (occurrence: None)
  Receive Date: 20070726
  Receipt Date: 20070501
  Transmission Date: 20080115
  Serious: No
  Sender: FDA-Public Use
  Company Number: US-AMGEN-KDL222675

PATIENT
  Sex: Female
  Weight: 61.3 kg

DRUGS (9)
  1. PROCRIT [Suspect]
     Indication: MYELODYSPLASTIC SYNDROME
     Dates: start: 20070105
  2. MICARDIS [Suspect]
  3. ASACOL [Concomitant]
     Dates: start: 19990101
  4. LIPITOR [Concomitant]
  5. TRAZODONE HCL [Concomitant]
  6. FOLIC ACID [Concomitant]
     Dates: start: 20070101
  7. HYDROCHLOROTHIAZIDE [Concomitant]
  8. COSOPT [Concomitant]
     Route: 047
  9. VITAMIN B6 [Concomitant]
     Dates: start: 20070101

REACTIONS (5)
  - ANOREXIA [None]
  - DYSPNOEA [None]
  - FATIGUE [None]
  - NAUSEA [None]
  - RETCHING [None]
